FAERS Safety Report 9937337 (Version 2)
Quarter: 2014Q2

REPORT INFORMATION
  Report Type: Spontaneous
  Country: US (occurrence: US)
  Receive Date: 20140303
  Receipt Date: 20140512
  Transmission Date: 20141212
  Serious: No
  Sender: FDA-Public Use
  Company Number: US-009507513-1402USA013240

PATIENT
  Age: 36 Year
  Sex: Male
  Weight: 81.63 kg

DRUGS (2)
  1. CLARITIN REDITABS [Suspect]
     Indication: PRODUCT USED FOR UNKNOWN INDICATION
     Dosage: 40 MG, ONCE
     Route: 048
  2. CLARITIN REDITABS [Suspect]
     Dosage: 10 MG, UNKNOWN
     Route: 048

REACTIONS (3)
  - Condition aggravated [Recovered/Resolved]
  - Overdose [Unknown]
  - Drug ineffective [Unknown]
